FAERS Safety Report 14826836 (Version 1)
Quarter: 2018Q2

REPORT INFORMATION
  Report Type: Spontaneous
  Country: US (occurrence: US)
  Receive Date: 20180430
  Receipt Date: 20180430
  Transmission Date: 20180711
  Serious: Yes (Other)
  Sender: FDA-Public Use
  Company Number: US-BAYER-2018-076889

PATIENT
  Age: 15 Year
  Sex: Male

DRUGS (3)
  1. DEXAMETHASONE. [Concomitant]
     Active Substance: DEXAMETHASONE
  2. SORAFENIB (RAF KINASE INHIBITOR) [Suspect]
     Active Substance: SORAFENIB
     Indication: ACUTE MYELOID LEUKAEMIA
  3. AZACITIDINE. [Concomitant]
     Active Substance: AZACITIDINE
     Dosage: 2 CYCLES

REACTIONS (14)
  - Metapneumovirus infection [None]
  - Rash [Recovered/Resolved]
  - Sepsis [None]
  - Febrile neutropenia [None]
  - Cytopenia [Recovered/Resolved]
  - Graft versus host disease [None]
  - Meningitis [None]
  - Product use in unapproved indication [None]
  - Off label use [None]
  - Clostridium difficile colitis [None]
  - Minimal residual disease [None]
  - Product use issue [None]
  - Infection [None]
  - Varicella zoster virus infection [None]
